FAERS Safety Report 4629922-3 (Version None)
Quarter: 2005Q2

REPORT INFORMATION
  Report Type: 
  Country: None (occurrence: None)
  Receive Date: 20050408
  Receipt Date: 20050228
  Transmission Date: 20051028
  Serious: Yes (Other)
  Sender: FDA-Public Use
  Company Number: ES-BRISTOL-MYERS SQUIBB COMPANY-12879821

PATIENT
  Age: 46 Year
  Sex: Male
  Weight: 84 kg

DRUGS (4)
  1. ZERIT [Suspect]
     Indication: HIV INFECTION
     Route: 048
     Dates: start: 20021205, end: 20040203
  2. DIDANOSINE [Suspect]
  3. EFAVIRENZ [Suspect]
  4. SEPTRA [Concomitant]

REACTIONS (1)
  - HYPERTRIGLYCERIDAEMIA [None]
